FAERS Safety Report 5819074-6 (Version None)
Quarter: 2008Q3

REPORT INFORMATION
  Report Type: 
  Country: None (occurrence: None)
  Receive Date: 20080723
  Receipt Date: 20080715
  Transmission Date: 20090109
  Serious: Yes (Hospitalization, Other)
  Sender: FDA-Public Use
  Company Number: US-GILEAD-2008-0017151

PATIENT
  Sex: Female

DRUGS (6)
  1. LETAIRIS [Suspect]
     Indication: PULMONARY ARTERIAL HYPERTENSION
     Route: 048
     Dates: start: 20080603, end: 20080620
  2. LASIX [Concomitant]
  3. LISINOPRIL [Concomitant]
  4. AVAPRO [Concomitant]
  5. CLONIDINE [Concomitant]
  6. ALBUTEROL [Concomitant]

REACTIONS (2)
  - ABDOMINAL PAIN [None]
  - URINARY TRACT INFECTION [None]
